FAERS Safety Report 8947859 (Version 2)
Quarter: 2013Q1

REPORT INFORMATION
  Report Type: Spontaneous
  Country: US (occurrence: None)
  Receive Date: 20121127
  Receipt Date: 20121211
  Transmission Date: 20140127
  Serious: Yes (Life-Threatening, Hospitalization)
  Sender: FDA-Public Use
  Company Number: 2012SP003777

PATIENT
  Age: 58 Year
  Sex: Female
  Weight: 105 kg

DRUGS (3)
  1. OXALIPLATIN [Suspect]
     Indication: PRODUCT USED FOR UNKNOWN INDICATION
     Dates: end: 20121031
  2. FLUOROURACIL [Suspect]
     Indication: PRODUCT USED FOR UNKNOWN INDICATION
     Route: 042
     Dates: end: 20121031
  3. LEUCOVORIN /00566702/ [Suspect]
     Route: 042
     Dates: end: 20121031

REACTIONS (2)
  - Subdural haemorrhage [None]
  - Road traffic accident [None]
